FAERS Safety Report 4746120-3 (Version None)
Quarter: 2005Q3

REPORT INFORMATION
  Report Type: 
  Country: None (occurrence: None)
  Receive Date: 20050816
  Receipt Date: 20050812
  Transmission Date: 20060218
  Serious: Yes (Death, Hospitalization)
  Sender: FDA-Public Use
  Company Number: FR-BRISTOL-MYERS SQUIBB COMPANY-13076609

PATIENT
  Age: 62 Year
  Sex: Male

DRUGS (2)
  1. VINFLUNINE IV [Suspect]
     Indication: NON-SMALL CELL LUNG CANCER
     Dosage: REC'D 656 MG. CYCLE 1: 24-NOV-03 (656 MG). GIVEN DAY 1 EVERY 3 WEEKS.
     Route: 042
     Dates: start: 20031215, end: 20031215
  2. CARBOPLATIN [Suspect]
     Indication: NON-SMALL CELL LUNG CANCER
     Dosage: CYCLE 1: 24-NOV-03 (680 MG). GIVEN DAY 1 EVERY 3 WEEKS, AT AUC 5.
     Route: 042
     Dates: start: 20031215, end: 20031215

REACTIONS (13)
  - BLOOD POTASSIUM DECREASED [None]
  - BLOOD SODIUM DECREASED [None]
  - COMA [None]
  - METABOLIC ENCEPHALOPATHY [None]
  - METASTASIS [None]
  - MULTI-ORGAN FAILURE [None]
  - NERVOUS SYSTEM DISORDER [None]
  - OESOPHAGEAL ULCER [None]
  - PANCYTOPENIA [None]
  - RENAL FAILURE [None]
  - RESPIRATORY FAILURE [None]
  - SEPTIC SHOCK [None]
  - STAPHYLOCOCCAL INFECTION [None]
